FAERS Safety Report 6640460-9 (Version None)
Quarter: 2010Q1

REPORT INFORMATION
  Report Type: 
  Country: None (occurrence: None)
  Receive Date: 20100318
  Receipt Date: 20100308
  Transmission Date: 20100710
  Serious: Yes (Hospitalization, Disabling, Other)
  Sender: FDA-Public Use
  Company Number: AU-PFIZER INC-2010015141

PATIENT
  Age: 69 Year
  Sex: Female
  Weight: 70 kg

DRUGS (1)
  1. SUTENT [Suspect]
     Indication: METASTATIC RENAL CELL CARCINOMA
     Dosage: 50 MG, 1X/DAY
     Route: 048
     Dates: start: 20100101

REACTIONS (9)
  - ASTHENIA [None]
  - CEREBRAL HAEMORRHAGE [None]
  - INAPPROPRIATE ANTIDIURETIC HORMONE SECRETION [None]
  - MOBILITY DECREASED [None]
  - MUSCULAR WEAKNESS [None]
  - MYOPATHY [None]
  - NEOPLASM PROGRESSION [None]
  - NERVE COMPRESSION [None]
  - NEUROPATHY PERIPHERAL [None]
